FAERS Safety Report 5238133-2 (Version None)
Quarter: 2007Q1

REPORT INFORMATION
  Report Type: 
  Country: None (occurrence: None)
  Receive Date: 20070215
  Receipt Date: 20070202
  Transmission Date: 20070707
  Serious: Yes (Other)
  Sender: FDA-Public Use
  Company Number: PHBS2007BR02191

PATIENT
  Age: 58 Year
  Sex: Female
  Weight: 61 kg

DRUGS (3)
  1. DIOVAN [Suspect]
     Indication: HYPERTENSION
     Dosage: 160 MG, QD
     Route: 048
  2. NATRIOLAX [Concomitant]
     Dosage: 1 TABLET/DAY
     Route: 048
  3. BUSCOPAN [Concomitant]
     Dates: end: 20070201

REACTIONS (8)
  - ABDOMINAL PAIN [None]
  - BIOPSY [None]
  - BLADDER PAIN [None]
  - BLOOD URINE PRESENT [None]
  - DEHYDRATION [None]
  - FLATULENCE [None]
  - FREQUENT BOWEL MOVEMENTS [None]
  - NERVOUSNESS [None]
